FAERS Safety Report 4790321-5 (Version None)
Quarter: 2005Q4

REPORT INFORMATION
  Report Type: 
  Country: None (occurrence: None)
  Receive Date: 20051005
  Receipt Date: 20051005
  Transmission Date: 20060501
  Serious: Yes (Life-Threatening, Hospitalization)
  Sender: FDA-Public Use
  Company Number: None

PATIENT
  Sex: Female
  Weight: 60 kg

DRUGS (3)
  1. ACETAMINOPHEN [Suspect]
     Dosage: 30 TABLETS PO
     Route: 048
  2. SERTRALINE 50 MG [Suspect]
     Dosage: 30 TABLETS PO
     Route: 048
  3. RABEPRAZOLE SODIUM [Concomitant]

REACTIONS (4)
  - DIZZINESS [None]
  - FALL [None]
  - MULTIPLE DRUG OVERDOSE [None]
  - SUICIDE ATTEMPT [None]
